FAERS Safety Report 7633220-3 (Version None)
Quarter: 2011Q3

REPORT INFORMATION
  Report Type: 
  Country: None (occurrence: None)
  Receive Date: 20110718
  Receipt Date: 20100116
  Transmission Date: 20111222
  Serious: No
  Sender: FDA-Public Use
  Company Number: 2010AP000117

PATIENT
  Age: 8 Year
  Sex: Female

DRUGS (2)
  1. FLUTICASONE PROPIONATE [Suspect]
     Indication: ASTHMA
     Dosage: INH
     Route: 055
  2. ALBUTEROL SULFATE [Suspect]
     Indication: ASTHMA
     Dosage: INH
     Route: 055

REACTIONS (5)
  - URTICARIA [None]
  - DYSPNOEA [None]
  - WHEEZING [None]
  - PERIORBITAL OEDEMA [None]
  - BRONCHOSPASM PARADOXICAL [None]
